FAERS Safety Report 5124593-4 (Version None)
Quarter: 2006Q4

REPORT INFORMATION
  Report Type: 
  Country: None (occurrence: None)
  Receive Date: 20061011
  Receipt Date: 20060927
  Transmission Date: 20070319
  Serious: Yes (Other)
  Sender: FDA-Public Use
  Company Number: PHBS2006US15064

PATIENT
  Weight: 415 kg

DRUGS (1)
  1. OXYTOCIN [Suspect]
     Route: 064

REACTIONS (5)
  - CEREBRAL PALSY [None]
  - CONVULSION [None]
  - HYPOTENSION [None]
  - METABOLIC ACIDOSIS [None]
  - NEONATAL DISORDER [None]
